FAERS Safety Report 4519124-3 (Version None)
Quarter: 2004Q4

REPORT INFORMATION
  Report Type: 
  Country: None (occurrence: None)
  Receive Date: 20041206
  Receipt Date: 20041124
  Transmission Date: 20050328
  Serious: Yes (Hospitalization)
  Sender: FDA-Public Use
  Company Number: FRWYE234625NOV04

PATIENT
  Age: 42 Year
  Sex: Male

DRUGS (2)
  1. ENBREL [Suspect]
     Indication: ANKYLOSING SPONDYLITIS
     Route: 058
     Dates: start: 20040820, end: 20041101
  2. NSAID [Concomitant]
     Dosage: UNKNOWN

REACTIONS (4)
  - EPIDURITIS [None]
  - LUNG ABSCESS [None]
  - PSOAS ABSCESS [None]
  - STAPHYLOCOCCAL SEPSIS [None]
